FAERS Safety Report 5562881-8 (Version None)
Quarter: 2007Q4

REPORT INFORMATION
  Report Type: 
  Country: None (occurrence: None)
  Receive Date: 20071212
  Receipt Date: 20071212
  Transmission Date: 20080405
  Serious: Yes (Hospitalization)
  Sender: FDA-Public Use
  Company Number: None

PATIENT
  Sex: Male
  Weight: 81.3 kg

DRUGS (1)
  1. CISPLATIN [Suspect]
     Dosage: 199 MG
     Dates: end: 20071105

REACTIONS (3)
  - ANAEMIA [None]
  - DEHYDRATION [None]
  - PNEUMONIA STAPHYLOCOCCAL [None]
